FAERS Safety Report 9957212 (Version 1)
Quarter: 2014Q1

REPORT INFORMATION
  Report Type: Report from Study
  Country: US (occurrence: US)
  Receive Date: 20140304
  Receipt Date: 20140304
  Transmission Date: 20141002
  Serious: No
  Sender: FDA-Public Use
  Company Number: US-ABBVIE-13P-163-1096619-00

PATIENT
  Age: 64 Year
  Sex: Female

DRUGS (6)
  1. HUMIRA [Suspect]
     Indication: RHEUMATOID ARTHRITIS
  2. METHOTREXATE [Suspect]
     Indication: RHEUMATOID ARTHRITIS
  3. VAGIFEM [Concomitant]
     Indication: VULVOVAGINAL DRYNESS
     Route: 067
  4. RESTASIS [Concomitant]
     Indication: DRY EYE
     Dosage: BILATERAL EYES
     Route: 047
  5. HYDROCHLORTHIAZIDE [Concomitant]
     Indication: HYPERTENSION
  6. MULTIPLE SUPPLEMENTS [Concomitant]
     Indication: ROUTINE HEALTH MAINTENANCE
     Dosage: DAILY

REACTIONS (2)
  - Diarrhoea [Not Recovered/Not Resolved]
  - Cholelithiasis [Not Recovered/Not Resolved]
